FAERS Safety Report 18291128 (Version 1)
Quarter: 2020Q3

REPORT INFORMATION
  Report Type: Spontaneous
  Country: US (occurrence: US)
  Receive Date: 20200921
  Receipt Date: 20200921
  Transmission Date: 20201103
  Serious: Yes (Hospitalization, Other)
  Sender: FDA-Public Use
  Company Number: US-JNJFOC-20200920041

PATIENT
  Age: 8 Month
  Sex: Male
  Weight: 8.17 kg

DRUGS (5)
  1. TOPAMAX [Suspect]
     Active Substance: TOPIRAMATE
     Indication: PRODUCT USED FOR UNKNOWN INDICATION
     Route: 048
  2. AQUADEKS                           /07679501/ [Concomitant]
     Active Substance: MINERALS\VITAMINS
  3. LEVETIRACETAM. [Concomitant]
     Active Substance: LEVETIRACETAM
  4. ONFI [Concomitant]
     Active Substance: CLOBAZAM
  5. CHOLBAM [Suspect]
     Active Substance: CHOLIC ACID
     Indication: CEREBROHEPATORENAL SYNDROME
     Dosage: DOSE ROUTE IS THROUGH G?TUBE
     Dates: start: 20191222

REACTIONS (5)
  - Hypoxia [Recovering/Resolving]
  - Nephrolithiasis [Unknown]
  - Product use issue [Unknown]
  - Off label use [Unknown]
  - Urinary tract infection bacterial [Recovering/Resolving]

NARRATIVE: CASE EVENT DATE: 20200622
